FAERS Safety Report 9767184 (Version 3)
Quarter: 2014Q1

REPORT INFORMATION
  Report Type: Report from Study
  Country: DE (occurrence: DE)
  Receive Date: 20131217
  Receipt Date: 20140220
  Transmission Date: 20141002
  Serious: Yes (Hospitalization)
  Sender: FDA-Public Use
  Company Number: DE-ABBVIE-13P-062-1169605-00

PATIENT
  Age: 41 Year
  Sex: Male

DRUGS (3)
  1. HUMIRA [Suspect]
     Indication: CROHN^S DISEASE
     Route: 058
     Dates: start: 20130611, end: 20131105
  2. HUMIRA [Suspect]
     Dates: start: 20131205
  3. HUMIRA [Suspect]
     Route: 058
     Dates: start: 201401

REACTIONS (1)
  - Fistula [Recovered/Resolved]
